FAERS Safety Report 4586903-6 (Version None)
Quarter: 2005Q1

REPORT INFORMATION
  Report Type: 
  Country: None (occurrence: None)
  Receive Date: 20050218
  Receipt Date: 20050209
  Transmission Date: 20050727
  Serious: Yes (Other)
  Sender: FDA-Public Use
  Company Number: CA-ROCHE-395232

PATIENT
  Age: 86 Year
  Sex: Male
  Weight: 60.3 kg

DRUGS (5)
  1. TAMIFLU [Suspect]
     Indication: INFLUENZA
     Route: 048
     Dates: start: 20050131, end: 20050205
  2. WARFARIN SODIUM [Concomitant]
     Indication: ATRIAL FIBRILLATION
     Route: 048
     Dates: start: 20050123, end: 20050207
  3. ASPIRIN [Concomitant]
     Indication: CEREBROVASCULAR ACCIDENT PROPHYLAXIS
     Route: 048
     Dates: start: 20050107
  4. ANAGRELIDE HCL [Concomitant]
     Route: 048
     Dates: start: 20050107
  5. POLYVINYL ALCOHOL [Concomitant]
     Route: 031
     Dates: start: 20050203

REACTIONS (1)
  - INTERNATIONAL NORMALISED RATIO INCREASED [None]
